FAERS Safety Report 4727272-8 (Version None)
Quarter: 2005Q3

REPORT INFORMATION
  Report Type: 
  Country: None (occurrence: None)
  Receive Date: 20050727
  Receipt Date: 20050727
  Transmission Date: 20060218
  Serious: Yes (Hospitalization)
  Sender: FDA-Public Use
  Company Number: None

PATIENT
  Age: 48 Year
  Sex: Male
  Weight: 85.2 kg

DRUGS (12)
  1. WARFARIN [Suspect]
     Indication: MITRAL VALVE INCOMPETENCE
     Dosage: VARIOUS, VARIOUS, ORAL
     Route: 048
  2. FLUTICASONE PROP [Concomitant]
  3. QUETIAPINE FUMARATE [Concomitant]
  4. LISINOPRIL [Concomitant]
  5. LANOXIN [Concomitant]
  6. FUROSEMIDE [Concomitant]
  7. OMEPRAZOLE [Concomitant]
  8. SPIRONOLACTONE [Concomitant]
  9. PSYLLUM [Concomitant]
  10. GABAPENTIN [Concomitant]
  11. FERROUS SO4 [Concomitant]
  12. LISINOPRIL [Concomitant]

REACTIONS (1)
  - INTERNATIONAL NORMALISED RATIO INCREASED [None]
